FAERS Safety Report 6755965-X (Version None)
Quarter: 2010Q2

REPORT INFORMATION
  Report Type: 
  Country: None (occurrence: None)
  Receive Date: 20100604
  Receipt Date: 20100526
  Transmission Date: 20101027
  Serious: Yes (Death, Other)
  Sender: FDA-Public Use
  Company Number: PHEH2010US02592

PATIENT
  Sex: Male
  Weight: 107.72 kg

DRUGS (14)
  1. EXJADE [Suspect]
     Indication: IRON OVERLOAD
     Dosage: 2000 MG, QD
     Route: 048
     Dates: start: 20080605
  2. EXJADE [Suspect]
     Indication: NEOPLASM
  3. DECITABINE [Concomitant]
     Indication: MYELODYSPLASTIC SYNDROME
     Dosage: 40MG DAY 1THRU 5 Q28 DAYS
     Route: 042
     Dates: start: 20090427, end: 20090724
  4. REVLIMID [Concomitant]
     Indication: MYELODYSPLASTIC SYNDROME
     Dosage: 10 MG, QD
     Route: 048
     Dates: start: 20080317
  5. SIMVASTATIN [Concomitant]
     Dosage: 80 MG 1/2 DAILY
  6. LABETALOL HCL [Concomitant]
     Dosage: 200MG, 1/2 BID
  7. NITROGLYCERIN [Concomitant]
     Dosage: UNK
     Route: 060
  8. DIOVAN [Concomitant]
     Dosage: 320 MG, QD
  9. PROBENECID [Concomitant]
     Dosage: 500 MG, QD
  10. FUROSEMIDE [Concomitant]
     Dosage: 80MG ALTERNATING WITH 40MG
     Route: 048
  11. HYDROCODONE BITARTRATE AND ACETAMINOPHEN [Concomitant]
     Dosage: 5/500 Q4H PRN
  12. ALLOPURINOL [Concomitant]
     Dosage: 300 MG, QD
     Route: 048
  13. COMPAZINE [Concomitant]
     Dosage: 10 MG, PRN
     Route: 048
  14. RED BLOOD CELLS [Concomitant]

REACTIONS (2)
  - MALIGNANT NEOPLASM PROGRESSION [None]
  - PLATELET COUNT DECREASED [None]
